FAERS Safety Report 17862328 (Version 3)
Quarter: 2020Q2

REPORT INFORMATION
  Report Type: Spontaneous
  Country: PT (occurrence: PT)
  Receive Date: 20200604
  Receipt Date: 20200616
  Transmission Date: 20200714
  Serious: Yes (Death, Life-Threatening, Hospitalization, Other)
  Sender: FDA-Public Use
  Company Number: PT-SA-2020SA142008

PATIENT

DRUGS (17)
  1. CARBOPLATIN. [Suspect]
     Active Substance: CARBOPLATIN
     Dosage: UNK, CYCLIC (CYCLE 5)
  2. CARBOPLATIN. [Suspect]
     Active Substance: CARBOPLATIN
     Dosage: CYCLIC (CYCLE 4), POWDER FOR CONCENTRATE FOR SOLUTION FOR INFUSION
  3. TRASTUZUMAB. [Suspect]
     Active Substance: TRASTUZUMAB
     Indication: CHEMOTHERAPY
     Dosage: 1 UNK, QCY, POWDER FOR CONCENTRATE FOR SOLUTION FOR INFUSION
  4. DOCETAXEL. [Suspect]
     Active Substance: DOCETAXEL
     Indication: CHEMOTHERAPY
     Dosage: UNK UNK, QCY
  5. CARBOPLATIN. [Suspect]
     Active Substance: CARBOPLATIN
     Indication: CHEMOTHERAPY
     Dosage: UNK, CYCLIC (CYCLE 1)
  6. CARBOPLATIN. [Suspect]
     Active Substance: CARBOPLATIN
     Dosage: UNK, CYCLIC (CYCLE 6)
  7. TRASTUZUMAB. [Suspect]
     Active Substance: TRASTUZUMAB
     Indication: INVASIVE DUCTAL BREAST CARCINOMA
     Dosage: POWDER FOR CONCENTRATE FOR SOLUTION FOR INFUSION
  8. TRASTUZUMAB. [Suspect]
     Active Substance: TRASTUZUMAB
     Indication: HER2 POSITIVE BREAST CANCER
     Dosage: UNK, CYCLIC (CYCLE 2), POWDER FOR CONCENTRATE FOR SOLUTION FOR INFUSION
  9. TRASTUZUMAB. [Suspect]
     Active Substance: TRASTUZUMAB
     Dosage: UNK, CYCLIC (CYCLE 5)
  10. DOCETAXEL. [Suspect]
     Active Substance: DOCETAXEL
     Dosage: UNK, CYCLIC (CYCLE 2)  UNK
  11. DOCETAXEL. [Suspect]
     Active Substance: DOCETAXEL
     Indication: HER2 POSITIVE BREAST CANCER
     Dosage: QCY (CYCLE 5)
  12. DOCETAXEL. [Suspect]
     Active Substance: DOCETAXEL
     Dosage: CYCLIC (CYCLE 4) UNK
  13. DOCETAXEL. [Suspect]
     Active Substance: DOCETAXEL
     Dosage: UNK, CYCLIC (CYCLE 3)
  14. DOCETAXEL. [Suspect]
     Active Substance: DOCETAXEL
     Indication: INVASIVE DUCTAL BREAST CARCINOMA
     Dosage: UNK, CYCLIC (CYCLE 6)
  15. CARBOPLATIN. [Suspect]
     Active Substance: CARBOPLATIN
     Indication: INVASIVE DUCTAL BREAST CARCINOMA
     Dosage: UNK, CYCLIC (CYCLE 3)
  16. CARBOPLATIN. [Suspect]
     Active Substance: CARBOPLATIN
     Dosage: UNK, CYCLIC (CYCLE 2)
  17. TRASTUZUMAB. [Suspect]
     Active Substance: TRASTUZUMAB
     Dosage: UNK, CYCLIC (CYCLE 6), POWDER FOR CONCENTRATE FOR SOLUTION FOR INFUSION

REACTIONS (25)
  - Condition aggravated [Fatal]
  - Dysphagia [Unknown]
  - Abdominal tenderness [Unknown]
  - Clostridium bacteraemia [Fatal]
  - Intestinal ischaemia [Fatal]
  - Chills [Unknown]
  - Febrile neutropenia [Fatal]
  - Metabolic acidosis [Not Recovered/Not Resolved]
  - Vomiting [Unknown]
  - Infection [Fatal]
  - Odynophagia [Unknown]
  - Pyrexia [Unknown]
  - Hypotension [Recovered/Resolved]
  - Portal venous gas [Fatal]
  - Enterocolitis [Fatal]
  - Cardio-respiratory arrest [Fatal]
  - Neutropenia [Unknown]
  - Stomatitis [Unknown]
  - Pneumoretroperitoneum [Fatal]
  - Sepsis [Fatal]
  - Generalised tonic-clonic seizure [Recovered/Resolved]
  - Seizure [Recovered/Resolved]
  - Pleural effusion [Fatal]
  - Acute kidney injury [Not Recovered/Not Resolved]
  - Nausea [Unknown]
